FAERS Safety Report 8284894-8 (Version None)
Quarter: 2012Q2

REPORT INFORMATION
  Report Type: 
  Country: None (occurrence: None)
  Receive Date: 20120413
  Receipt Date: 20111013
  Transmission Date: 20120825
  Serious: No
  Sender: FDA-Public Use
  Company Number: US-ASTRAZENECA-2011SE61913

PATIENT
  Age: 56 Year
  Sex: Female

DRUGS (3)
  1. NEXIUM [Suspect]
     Route: 048
  2. NEXIUM [Suspect]
     Dosage: DAILY
     Route: 048
  3. NEXIUM [Suspect]
     Dosage: TWICE DAILY
     Route: 048

REACTIONS (5)
  - DRUG PRESCRIBING ERROR [None]
  - OROPHARYNGEAL PAIN [None]
  - POST PROCEDURAL COMPLICATION [None]
  - GASTROOESOPHAGEAL REFLUX DISEASE [None]
  - INAPPROPRIATE SCHEDULE OF DRUG ADMINISTRATION [None]
